FAERS Safety Report 8037984-9 (Version None)
Quarter: 2012Q1

REPORT INFORMATION
  Report Type: 
  Country: None (occurrence: None)
  Receive Date: 20120111
  Receipt Date: 20120106
  Transmission Date: 20120608
  Serious: Yes (Other)
  Sender: FDA-Public Use
  Company Number: CA-PFIZER INC-2011122248

PATIENT
  Sex: Male

DRUGS (4)
  1. VENLAFAXINE HCL [Suspect]
     Indication: DEPRESSION
     Dosage: 225 MG DAILY
     Dates: start: 20060101
  2. VENLAFAXINE HCL [Suspect]
     Indication: SOCIAL AVOIDANT BEHAVIOUR
  3. VENLAFAXINE HCL [Suspect]
     Indication: DYSPHAGIA
  4. VENLAFAXINE HCL [Suspect]
     Indication: ANXIETY

REACTIONS (9)
  - THEFT [None]
  - AGITATION [None]
  - MENTAL STATUS CHANGES [None]
  - HYPOMANIA [None]
  - HOMICIDE [None]
  - PARAPHILIA [None]
  - JUDGEMENT IMPAIRED [None]
  - REACTIVE PSYCHOSIS [None]
  - ABNORMAL BEHAVIOUR [None]
